FAERS Safety Report 7995233-1 (Version None)
Quarter: 2011Q4

REPORT INFORMATION
  Report Type: 
  Country: None (occurrence: None)
  Receive Date: 20111220
  Receipt Date: 20111220
  Transmission Date: 20120403
  Serious: Yes (Other)
  Sender: FDA-Public Use
  Company Number: None

PATIENT
  Age: 20 Year
  Sex: Male
  Weight: 65.317 kg

DRUGS (2)
  1. IOPROMIDE [Suspect]
     Indication: SCAN WITH CONTRAST
     Dosage: 80ML
     Route: 042
     Dates: start: 20111205, end: 20111205
  2. IOPROMIDE [Suspect]
     Indication: COMPUTERISED TOMOGRAM HEAD
     Dosage: 80ML
     Route: 042
     Dates: start: 20111205, end: 20111205

REACTIONS (2)
  - EYE PRURITUS [None]
  - LIP SWELLING [None]
